FAERS Safety Report 22234565 (Version 1)
Quarter: 2023Q2

REPORT INFORMATION
  Report Type: Spontaneous
  Country: CN (occurrence: None)
  Receive Date: 20230420
  Receipt Date: 20230420
  Transmission Date: 20230721
  Serious: Yes (Hospitalization, Other)
  Sender: FDA-Public Use
  Company Number: 2023A085929

PATIENT
  Age: 58 Year
  Sex: Female
  Weight: 60 kg

DRUGS (2)
  1. OSIMERTINIB MESYLATE [Suspect]
     Active Substance: OSIMERTINIB MESYLATE
     Indication: Neoplasm
     Route: 048
     Dates: start: 20230320, end: 20230320
  2. VALPROATE SODIUM [Concomitant]
     Active Substance: VALPROATE SODIUM
     Indication: Epilepsy
     Route: 048
     Dates: start: 20230320, end: 20230407

REACTIONS (7)
  - Visual impairment [Not Recovered/Not Resolved]
  - Dizziness [Not Recovered/Not Resolved]
  - Hypoacusis [Not Recovered/Not Resolved]
  - Metastases to central nervous system [Unknown]
  - Ear discomfort [Unknown]
  - Ear pruritus [Unknown]
  - Vision blurred [Unknown]

NARRATIVE: CASE EVENT DATE: 20230331
